FAERS Safety Report 14225982 (Version 1)
Quarter: 2017Q4

REPORT INFORMATION
  Report Type: Spontaneous
  Country: US (occurrence: US)
  Receive Date: 20171127
  Receipt Date: 20171127
  Transmission Date: 20180321
  Serious: No
  Sender: FDA-Public Use
  Company Number: US-TEVA-791966ACC

PATIENT
  Age: 55 Year
  Sex: Male

DRUGS (1)
  1. BUPROPION EXTENDED RELEASE [Suspect]
     Active Substance: BUPROPION
     Indication: PRODUCT USED FOR UNKNOWN INDICATION
     Dosage: DOSE STREGTH: 150
     Dates: start: 201606

REACTIONS (2)
  - Drug ineffective [Unknown]
  - Agitation [Unknown]
